FAERS Safety Report 19163633 (Version 1)
Quarter: 2021Q2

REPORT INFORMATION
  Report Type: Spontaneous
  Country: PL (occurrence: PL)
  Receive Date: 20210421
  Receipt Date: 20210421
  Transmission Date: 20210717
  Serious: Yes (Other)
  Sender: FDA-Public Use
  Company Number: PL-ACCORD-223069

PATIENT
  Age: 49 Year
  Sex: Female

DRUGS (2)
  1. CLONAZEPAM. [Suspect]
     Active Substance: CLONAZEPAM
     Indication: STIFF PERSON SYNDROME
  2. BACLOFEN. [Concomitant]
     Active Substance: BACLOFEN
     Indication: STIFF PERSON SYNDROME

REACTIONS (3)
  - Condition aggravated [Unknown]
  - Dystonia [Unknown]
  - Speech disorder [Unknown]
